FAERS Safety Report 9881078 (Version 1)
Quarter: 2014Q1

REPORT INFORMATION
  Report Type: Spontaneous
  Country: US (occurrence: None)
  Receive Date: 20140206
  Receipt Date: 20140206
  Transmission Date: 20141002
  Serious: Yes (Life-Threatening)
  Sender: FDA-Public Use
  Company Number: None

PATIENT
  Age: 74 Year
  Sex: Male
  Weight: 100.9 kg

DRUGS (10)
  1. ZYTIGA [Suspect]
     Indication: PRODUCT USED FOR UNKNOWN INDICATION
     Route: 048
     Dates: start: 20131106
  2. PREDNISONE [Suspect]
     Indication: PRODUCT USED FOR UNKNOWN INDICATION
     Route: 048
     Dates: start: 20131106
  3. TUMS [Concomitant]
  4. ADVIL [Concomitant]
  5. METOPROLOL [Concomitant]
  6. ATORVASTATIN [Concomitant]
  7. LISINOPRIL [Concomitant]
  8. PANTOPRAZOLE [Suspect]
  9. BABY ASPIRIN [Suspect]
  10. CLOPIDOGREL [Concomitant]

REACTIONS (1)
  - Myocardial infarction [None]
